FAERS Safety Report 19840843 (Version 1)
Quarter: 2021Q3

REPORT INFORMATION
  Report Type: Spontaneous
  Country: US (occurrence: US)
  Receive Date: 20210916
  Receipt Date: 20210916
  Transmission Date: 20211014
  Serious: Yes (Life-Threatening, Hospitalization, Other)
  Sender: FDA-Public Use
  Company Number: US-LUPIN PHARMACEUTICALS INC.-2021-17247

PATIENT
  Age: 69 Year
  Sex: Male

DRUGS (2)
  1. ETHYLENE GLYCOL [Suspect]
     Active Substance: ETHYLENE GLYCOL
     Indication: PRODUCT USED FOR UNKNOWN INDICATION
     Dosage: UNK, OVERDOSE
     Route: 065
  2. METFORMIN [Suspect]
     Active Substance: METFORMIN HYDROCHLORIDE
     Indication: DIABETES MELLITUS
     Dosage: UNK, OVERDOSE
     Route: 065

REACTIONS (10)
  - Unresponsive to stimuli [Unknown]
  - Lactic acidosis [Recovering/Resolving]
  - Atrioventricular node dysfunction [Recovered/Resolved]
  - Bradycardia [Unknown]
  - Acute kidney injury [Recovering/Resolving]
  - Cardiogenic shock [Unknown]
  - Hypothermia [Unknown]
  - Intentional overdose [Unknown]
  - Metabolic acidosis [Unknown]
  - Hypotension [Unknown]
